FAERS Safety Report 7793920-1 (Version None)
Quarter: 2011Q4

REPORT INFORMATION
  Report Type: 
  Country: None (occurrence: None)
  Receive Date: 20111004
  Receipt Date: 20110922
  Transmission Date: 20120403
  Serious: Yes (Hospitalization)
  Sender: FDA-Public Use
  Company Number: US-BIOGENIDEC-2011BI027407

PATIENT
  Age: 25 Year
  Sex: Male

DRUGS (1)
  1. TYSABRI [Suspect]
     Indication: MULTIPLE SCLEROSIS
     Route: 042
     Dates: start: 20070702

REACTIONS (4)
  - URINARY TRACT INFECTION STAPHYLOCOCCAL [None]
  - MULTIPLE SCLEROSIS RELAPSE [None]
  - TREMOR [None]
  - MALAISE [None]
